FAERS Safety Report 11257303 (Version 8)
Quarter: 2017Q3

REPORT INFORMATION
  Report Type: Report from Study
  Country: CA (occurrence: CA)
  Receive Date: 20150709
  Receipt Date: 20170810
  Transmission Date: 20171127
  Serious: Yes (Other)
  Sender: FDA-Public Use
  Company Number: CA-ROCHE-1217711

PATIENT
  Age: 27 Year
  Sex: Female
  Weight: 66 kg

DRUGS (17)
  1. ACTEMRA [Suspect]
     Active Substance: TOCILIZUMAB
     Indication: RHEUMATOID ARTHRITIS
     Route: 042
     Dates: start: 20130322
  2. RITUXAN [Suspect]
     Active Substance: RITUXIMAB
     Indication: RHEUMATOID ARTHRITIS
     Dosage: LAST DOSE WAS RECEIVED ON 15/DEC/2014, 23/JUN/2015, 30/JAN/2016, 29/AUG/2016
     Route: 042
     Dates: start: 20140515
  3. FOLIC ACID. [Concomitant]
     Active Substance: FOLIC ACID
  4. PREDNISONE. [Concomitant]
     Active Substance: PREDNISONE
     Dosage: 15-25 MG
     Route: 065
  5. CELEBREX [Concomitant]
     Active Substance: CELECOXIB
  6. METHYLPREDNISOLONE. [Concomitant]
     Active Substance: METHYLPREDNISOLONE
     Indication: PREMEDICATION
     Route: 042
     Dates: start: 20140515, end: 20141215
  7. LYRICA [Concomitant]
     Active Substance: PREGABALIN
  8. TYLENOL WITH CODEINE [Concomitant]
     Active Substance: ACETAMINOPHEN\CODEINE PHOSPHATE
  9. ACTEMRA [Suspect]
     Active Substance: TOCILIZUMAB
     Route: 042
     Dates: start: 20130510, end: 20130823
  10. HYDROXYCHLOROQUINE [Concomitant]
     Active Substance: HYDROXYCHLOROQUINE
  11. RALIVIA [Concomitant]
     Active Substance: TRAMADOL HYDROCHLORIDE
  12. DIPHENHYDRAMINE HCL [Concomitant]
     Active Substance: DIPHENHYDRAMINE HYDROCHLORIDE
     Indication: PREMEDICATION
     Route: 048
     Dates: start: 20140515
  13. ACETAMINOPHEN. [Concomitant]
     Active Substance: ACETAMINOPHEN
     Indication: PREMEDICATION
     Route: 048
     Dates: start: 20140515
  14. ELTROXIN [Concomitant]
     Active Substance: LEVOTHYROXINE
  15. METHOTREXATE. [Concomitant]
     Active Substance: METHOTREXATE
  16. VITAMIN D3 [Concomitant]
     Active Substance: CHOLECALCIFEROL
  17. GRAVOL [Concomitant]
     Active Substance: DIMENHYDRINATE

REACTIONS (17)
  - Aphthous ulcer [Unknown]
  - Erythema [Unknown]
  - Pain [Not Recovered/Not Resolved]
  - Body temperature decreased [Unknown]
  - Nausea [Not Recovered/Not Resolved]
  - Headache [Unknown]
  - Urticaria [Recovering/Resolving]
  - Hypotension [Unknown]
  - Arthritis [Not Recovered/Not Resolved]
  - Rheumatoid arthritis [Not Recovered/Not Resolved]
  - Fatigue [Unknown]
  - Blood pressure diastolic decreased [Unknown]
  - Oxygen saturation decreased [Unknown]
  - Macule [Not Recovered/Not Resolved]
  - Scab [Unknown]
  - Depression [Recovering/Resolving]
  - Peripheral swelling [Unknown]

NARRATIVE: CASE EVENT DATE: 201308
